FAERS Safety Report 9749220 (Version 1)
Quarter: 2013Q4

REPORT INFORMATION
  Report Type: Spontaneous
  Country: US (occurrence: US)
  Receive Date: 20131212
  Receipt Date: 20131212
  Transmission Date: 20140711
  Serious: No
  Sender: FDA-Public Use
  Company Number: US-INCYTE CORPORATION-2013IN002648

PATIENT
  Age: 85 Year
  Sex: Female

DRUGS (1)
  1. JAKAFI [Suspect]
     Indication: MYELOFIBROSIS
     Dosage: 5 MG, BID
     Route: 048
     Dates: start: 20131002

REACTIONS (7)
  - Pneumonia [Unknown]
  - Fall [Unknown]
  - Nausea [Unknown]
  - Myalgia [Unknown]
  - Bone pain [Unknown]
  - Muscle spasms [Unknown]
  - Contusion [Unknown]
